FAERS Safety Report 15963260 (Version 1)
Quarter: 2019Q1

REPORT INFORMATION
  Report Type: Spontaneous
  Country: US (occurrence: US)
  Receive Date: 20190214
  Receipt Date: 20190214
  Transmission Date: 20190417
  Serious: Yes (Other)
  Sender: FDA-Public Use
  Company Number: US-MAYNE PHARMA-2019MYN000088

PATIENT

DRUGS (2)
  1. LIOTHYRONINE [Suspect]
     Active Substance: LIOTHYRONINE
     Indication: THYROID HORMONE REPLACEMENT THERAPY
     Dosage: 5 MCG, QD
     Route: 048
     Dates: start: 20190207
  2. SYNTHROID [Concomitant]
     Active Substance: LEVOTHYROXINE SODIUM
     Indication: PRODUCT USED FOR UNKNOWN INDICATION
     Dosage: 125 UNK, UNK

REACTIONS (4)
  - Hypersensitivity [Recovering/Resolving]
  - Swelling face [Recovering/Resolving]
  - Lip swelling [Recovering/Resolving]
  - Urticaria [Recovering/Resolving]

NARRATIVE: CASE EVENT DATE: 20190207
